FAERS Safety Report 6261181-0 (Version None)
Quarter: 2009Q3

REPORT INFORMATION
  Report Type: 
  Country: None (occurrence: None)
  Receive Date: 20090709
  Receipt Date: 20080811
  Transmission Date: 20100115
  Serious: No
  Sender: FDA-Public Use
  Company Number: US-KINGPHARMUSA00001-K200800969

PATIENT
  Sex: Female

DRUGS (1)
  1. LEVOXYL [Suspect]
     Dosage: 50 MCG, QD
     Route: 064
     Dates: start: 20061101, end: 20080726

REACTIONS (6)
  - DARK CIRCLES UNDER EYES [None]
  - DRUG EXPOSURE DURING PREGNANCY [None]
  - DRUG EXPOSURE VIA BREAST MILK [None]
  - MALAISE [None]
  - WEIGHT DECREASED [None]
  - WEIGHT GAIN POOR [None]
